FAERS Safety Report 6935752-X (Version None)
Quarter: 2010Q3

REPORT INFORMATION
  Report Type: 
  Country: None (occurrence: None)
  Receive Date: 20100819
  Receipt Date: 20100819
  Transmission Date: 20110219
  Serious: No
  Sender: FDA-Public Use
  Company Number: None

PATIENT
  Age: 51 Year
  Sex: Female

DRUGS (25)
  1. CEFADROXIL [Suspect]
     Dates: start: 20071220, end: 20071220
  2. CEFAZOLIN [Suspect]
     Dates: start: 20071219, end: 20071219
  3. MIDAZOLAM HCL [Concomitant]
  4. FENTANYL CITRATE [Concomitant]
  5. PROPOFOL [Concomitant]
  6. ROCURONIUM BROMIDE [Concomitant]
  7. PHENYLEPHRINE HCL [Concomitant]
  8. DEXAMETHASONE [Concomitant]
  9. HALOPERIDOL [Concomitant]
  10. ONDANSETRON [Concomitant]
  11. SUCCINYLCHOLINE CHLORIDE [Concomitant]
  12. NEOSTIGMINE [Concomitant]
  13. EPHEDRINE [Concomitant]
  14. XYLOCAINE W/ EPINEPHRINE [Concomitant]
  15. GLYCOPYRROLATE [Concomitant]
  16. BACITRACIN [Concomitant]
  17. MARCAINE [Concomitant]
  18. PHENERGAN [Concomitant]
  19. PERCOCET [Concomitant]
  20. MULTI-VITAMIN [Concomitant]
  21. FLAXSEED OIL [Concomitant]
  22. GLUCOSAMINE/CHONDROITIN [Concomitant]
  23. CALCIUM [Concomitant]
  24. ESTROGEN CREAM [Concomitant]
  25. PREMARIN [Concomitant]

REACTIONS (1)
  - HEPATITIS [None]
